FAERS Safety Report 13668440 (Version 1)
Quarter: 2017Q2

REPORT INFORMATION
  Report Type: Spontaneous
  Country: GB (occurrence: GB)
  Receive Date: 20170620
  Receipt Date: 20170620
  Transmission Date: 20170830
  Serious: Yes (Other)
  Sender: FDA-Public Use
  Company Number: GB-IPSEN BIOPHARMACEUTICALS, INC.-2017-05504

PATIENT
  Sex: Male

DRUGS (2)
  1. SOMATULINE AUTOGEL 60MG [Suspect]
     Active Substance: LANREOTIDE ACETATE
     Indication: GASTROINTESTINAL CARCINOMA
     Dosage: 60 MG
     Route: 065
  2. SOMATULINE AUTOGEL 60MG [Suspect]
     Active Substance: LANREOTIDE ACETATE
     Indication: OFF LABEL USE

REACTIONS (5)
  - Surgery [Unknown]
  - Weight increased [Unknown]
  - Incorrect product storage [Unknown]
  - Off label use [Unknown]
  - Drug ineffective for unapproved indication [Unknown]
